FAERS Safety Report 22169758 (Version 6)
Quarter: 2024Q3

REPORT INFORMATION
  Report Type: Spontaneous
  Country: US (occurrence: US)
  Receive Date: 20230404
  Receipt Date: 20240812
  Transmission Date: 20241017
  Serious: No
  Sender: SANOFI AVENTIS
  Company Number: US-SA-SAC20230331000267

PATIENT
  Age: 59 Year
  Sex: Female

DRUGS (32)
  1. DUPIXENT [Suspect]
     Active Substance: DUPILUMAB
     Indication: Dermatitis atopic
     Dosage: 600 MG, 1X
     Route: 058
     Dates: start: 20230321, end: 20230321
  2. DUPIXENT [Suspect]
     Active Substance: DUPILUMAB
     Dosage: 300 MG, QOW
     Route: 058
     Dates: start: 202304
  3. ATORVASTATIN [Concomitant]
     Active Substance: ATORVASTATIN
     Dosage: UNK
  4. ATORVASTATIN [Concomitant]
     Active Substance: ATORVASTATIN
  5. CARVEDILOL [Concomitant]
     Active Substance: CARVEDILOL
     Dosage: UNK
  6. CARVEDILOL [Concomitant]
     Active Substance: CARVEDILOL
  7. ENALAPRIL MALEATE [Concomitant]
     Active Substance: ENALAPRIL MALEATE
     Dosage: UNK
  8. FUROSEMIDE [Concomitant]
     Active Substance: FUROSEMIDE
     Dosage: UNK
  9. FUROSEMIDE [Concomitant]
     Active Substance: FUROSEMIDE
  10. MELOXICAM [Concomitant]
     Active Substance: MELOXICAM
     Dosage: UNK
  11. MELOXICAM [Concomitant]
     Active Substance: MELOXICAM
  12. METFORMIN HYDROCHLORIDE [Concomitant]
     Active Substance: METFORMIN HYDROCHLORIDE
     Dosage: UNK
  13. MONTELUKAST [Concomitant]
     Active Substance: MONTELUKAST SODIUM
     Dosage: UNK
  14. MONTELUKAST [Concomitant]
     Active Substance: MONTELUKAST SODIUM
  15. POTASSIUM CHLORATE [Concomitant]
     Active Substance: POTASSIUM CHLORATE
     Dosage: UNK
  16. SERTRALINE HYDROCHLORIDE [Concomitant]
     Active Substance: SERTRALINE HYDROCHLORIDE
     Dosage: UNK
  17. SERTRALINE HYDROCHLORIDE [Concomitant]
     Active Substance: SERTRALINE HYDROCHLORIDE
  18. SYMBICORT [Concomitant]
     Active Substance: BUDESONIDE\FORMOTEROL FUMARATE DIHYDRATE
     Dosage: UNK
  19. SYMBICORT [Concomitant]
     Active Substance: BUDESONIDE\FORMOTEROL FUMARATE DIHYDRATE
  20. TACROLIMUS [Concomitant]
     Active Substance: TACROLIMUS
     Dosage: UNK
  21. TACROLIMUS [Concomitant]
     Active Substance: TACROLIMUS
  22. TAMOXIFEN CITRATE [Concomitant]
     Active Substance: TAMOXIFEN CITRATE
     Dosage: UNK
  23. TAMOXIFEN CITRATE [Concomitant]
     Active Substance: TAMOXIFEN CITRATE
  24. ASPIRIN [Concomitant]
     Active Substance: ASPIRIN
     Dosage: UNK
  25. HERBALS\TURMERIC [Concomitant]
     Active Substance: HERBALS\TURMERIC
     Dosage: UNK
  26. VITAMIN C [Concomitant]
     Active Substance: ASCORBIC ACID
     Dosage: UNK
  27. .ALPHA.-TOCOPHEROL [Concomitant]
     Active Substance: .ALPHA.-TOCOPHEROL
     Dosage: UNK
  28. IRON [Concomitant]
     Active Substance: IRON
     Dosage: UNK
  29. IRON [Concomitant]
     Active Substance: IRON
  30. POTASSIUM [Concomitant]
     Active Substance: POTASSIUM
     Dosage: UNK
  31. FUROSEMIDE [Concomitant]
     Active Substance: FUROSEMIDE
     Dosage: UNK
  32. VITAMIN D NOS [Concomitant]
     Active Substance: CHOLECALCIFEROL\ERGOCALCIFEROL

REACTIONS (25)
  - Dry skin [Not Recovered/Not Resolved]
  - Skin haemorrhage [Recovered/Resolved]
  - Lymphorrhoea [Unknown]
  - Skin weeping [Not Recovered/Not Resolved]
  - Fall [Not Recovered/Not Resolved]
  - Vitamin D decreased [Not Recovered/Not Resolved]
  - Drainage [Unknown]
  - Lymphoedema [Not Recovered/Not Resolved]
  - Fluid retention [Not Recovered/Not Resolved]
  - Skin infection [Not Recovered/Not Resolved]
  - Hot flush [Unknown]
  - Eczema [Not Recovered/Not Resolved]
  - Skin fissures [Recovered/Resolved]
  - Wound [Not Recovered/Not Resolved]
  - Weight decreased [Not Recovered/Not Resolved]
  - Skin exfoliation [Not Recovered/Not Resolved]
  - Insomnia [Not Recovered/Not Resolved]
  - Pruritus [Not Recovered/Not Resolved]
  - Erythema [Unknown]
  - Loss of personal independence in daily activities [Unknown]
  - Dermatitis atopic [Not Recovered/Not Resolved]
  - Arthralgia [Unknown]
  - Therapeutic product effect incomplete [Unknown]
  - Accidental exposure to product [Unknown]
  - Exposure via skin contact [Unknown]

NARRATIVE: CASE EVENT DATE: 20230101
